FAERS Safety Report 7401822-5 (Version None)
Quarter: 2011Q1

REPORT INFORMATION
  Report Type: 
  Country: None (occurrence: None)
  Receive Date: 20110329
  Receipt Date: 20110314
  Transmission Date: 20110831
  Serious: Yes (Hospitalization, Other)
  Sender: FDA-Public Use
  Company Number: 012635

PATIENT
  Sex: Female

DRUGS (17)
  1. CERTOLIZUMAB PEGOL (CERTOLIZUMAB PEGOL) [Suspect]
     Indication: RHEUMATOID ARTHRITIS
     Dosage: (400, C87041 SUBCUTANEOUS) , (400 1X/4 WEEKS  SUBCUTANEOUS)
     Route: 058
     Dates: start: 20090625, end: 20091224
  2. CERTOLIZUMAB PEGOL (CERTOLIZUMAB PEGOL) [Suspect]
     Indication: RHEUMATOID ARTHRITIS
     Dosage: (400, C87041 SUBCUTANEOUS) , (400 1X/4 WEEKS  SUBCUTANEOUS)
     Route: 058
     Dates: start: 20100107
  3. OCTOTIAMINE [Concomitant]
  4. PIRENOXINE [Concomitant]
  5. BROMFENAC SODIUM [Concomitant]
  6. ISONIAZID [Concomitant]
  7. LEVOFLOXACIN [Concomitant]
  8. PREDNISOLONE [Suspect]
     Indication: RHEUMATOID ARTHRITIS
     Dosage: (5 MG ORAL), (2.5 MG ORAL)
     Route: 048
     Dates: start: 20100722
  9. PREDNISOLONE [Suspect]
     Indication: RHEUMATOID ARTHRITIS
     Dosage: (5 MG ORAL), (2.5 MG ORAL)
     Route: 048
     Dates: start: 20070524, end: 20070721
  10. ROSUVASTATIN CALCIUM [Concomitant]
  11. METHOTREXATE [Concomitant]
  12. ALENDRONATE SODIUM [Concomitant]
  13. CEFDINIR [Concomitant]
  14. FOLIC ACID [Concomitant]
  15. INDOMETHACIN SODIUM [Concomitant]
  16. REBAMIPIDE [Concomitant]
  17. LANSOPRAZOLE [Concomitant]

REACTIONS (5)
  - CYSTITIS [None]
  - ADHESION [None]
  - UTERINE LEIOMYOMA [None]
  - HAEMORRHAGIC OVARIAN CYST [None]
  - CATARACT [None]
